FAERS Safety Report 6498266-X (Version None)
Quarter: 2009Q4

REPORT INFORMATION
  Report Type: 
  Country: None (occurrence: None)
  Receive Date: 20091215
  Receipt Date: 20091207
  Transmission Date: 20100525
  Serious: Yes (Other)
  Sender: FDA-Public Use
  Company Number: B0612585A

PATIENT
  Sex: Female

DRUGS (1)
  1. LAMICTAL [Suspect]
     Indication: BIPOLAR DISORDER
     Route: 048
     Dates: start: 20090701

REACTIONS (13)
  - AGGRESSION [None]
  - DIARRHOEA [None]
  - DIPLOPIA [None]
  - DIZZINESS [None]
  - EYE IRRITATION [None]
  - FEELING COLD [None]
  - HEADACHE [None]
  - IRRITABILITY [None]
  - NASOPHARYNGITIS [None]
  - NAUSEA [None]
  - RASH [None]
  - SOMNOLENCE [None]
  - STOMATITIS [None]
